FAERS Safety Report 15025295 (Version 3)
Quarter: 2018Q4

REPORT INFORMATION
  Report Type: Report from Study
  Country: US (occurrence: US)
  Receive Date: 20180618
  Receipt Date: 20181019
  Transmission Date: 20190204
  Serious: Yes (Other)
  Sender: FDA-Public Use
  Company Number: US-ACTELION-A-US2018-173696

PATIENT
  Age: 57 Year
  Sex: Male

DRUGS (1)
  1. UPTRAVI [Suspect]
     Active Substance: SELEXIPAG
     Indication: PULMONARY ARTERIAL HYPERTENSION
     Dosage: 400 MCG, BID
     Route: 048
     Dates: start: 20180424

REACTIONS (9)
  - Syncope [Unknown]
  - Nausea [Unknown]
  - Memory impairment [Unknown]
  - Flushing [Unknown]
  - Diarrhoea [Unknown]
  - Dialysis [Unknown]
  - Headache [Unknown]
  - Pain in jaw [Unknown]
  - Myalgia [Unknown]
